FAERS Safety Report 6669627-0 (Version None)
Quarter: 2010Q2

REPORT INFORMATION
  Report Type: 
  Country: None (occurrence: None)
  Receive Date: 20100406
  Receipt Date: 20100325
  Transmission Date: 20101027
  Serious: Yes (Other)
  Sender: FDA-Public Use
  Company Number: US-PFIZER INC-2010036664

PATIENT
  Sex: Female
  Weight: 60.771 kg

DRUGS (5)
  1. CHANTIX [Suspect]
     Indication: SMOKING CESSATION THERAPY
     Dosage: 0.5 MG, 1X/DAY
     Route: 048
     Dates: start: 20100313
  2. CHANTIX [Suspect]
     Dosage: 1 MG, 2X/DAY
     Route: 048
  3. PROTONIX [Concomitant]
     Indication: GASTROOESOPHAGEAL REFLUX DISEASE
     Dosage: 40 MG, 1X/DAY
     Route: 048
  4. CENTRUM SILVER [Concomitant]
     Dosage: UNK, 3X/WEEK
  5. CALCIUM WITH VITAMIN D [Concomitant]
     Dosage: 500 UNITS, 1X/DAY

REACTIONS (2)
  - GASTROOESOPHAGEAL REFLUX DISEASE [None]
  - TONGUE EXFOLIATION [None]
